FAERS Safety Report 5183108-5 (Version None)
Quarter: 2006Q4

REPORT INFORMATION
  Report Type: 
  Country: None (occurrence: None)
  Receive Date: 20061220
  Receipt Date: 20051214
  Transmission Date: 20070319
  Serious: No
  Sender: FDA-Public Use
  Company Number: CHPA2005US07635

PATIENT
  Age: 52 Year
  Sex: Male
  Weight: 74.8 kg

DRUGS (8)
  1. NICOTINE [Suspect]
     Dosage: 1PAT PER DAY
     Route: 062
  2. NICODERM [Suspect]
     Dates: end: 20051024
  3. WELLBUTRIN [Concomitant]
  4. ALTACE [Concomitant]
  5. ZETIA [Concomitant]
  6. TRICOR [Concomitant]
  7. FOLTX [Concomitant]
  8. CRESTOR [Concomitant]

REACTIONS (4)
  - APPLICATION SITE ERYTHEMA [None]
  - RASH PAPULAR [None]
  - RASH PRURITIC [None]
  - URTICARIA [None]
